FAERS Safety Report 7386199-6 (Version None)
Quarter: 2011Q1

REPORT INFORMATION
  Report Type: 
  Country: None (occurrence: None)
  Receive Date: 20110331
  Receipt Date: 20110322
  Transmission Date: 20110831
  Serious: Yes (Other)
  Sender: FDA-Public Use
  Company Number: CHPA2011AU04259

PATIENT
  Sex: Male

DRUGS (11)
  1. FLOMAX [Concomitant]
     Dosage: UNK, UNK
     Route: 065
  2. LAMISIL [Suspect]
     Indication: TINEA PEDIS
     Dosage: 1 DF, QD
     Route: 061
     Dates: start: 20110318, end: 20110322
  3. ATACAND [Concomitant]
     Dosage: UNK, UNK
     Route: 065
  4. WARFARIN [Concomitant]
     Dosage: UNK, UNK
     Route: 065
  5. EZETIMIBE [Concomitant]
     Dosage: UNK, UNK
     Route: 065
  6. PLAVIX [Concomitant]
     Dosage: UNK, UNK
     Route: 065
  7. SOMAC [Concomitant]
     Dosage: UNK, UNK
     Route: 065
  8. CRESTOR [Concomitant]
     Dosage: UNK, UNK
     Route: 065
  9. FOSAMAX PLUS D [Concomitant]
     Dosage: UNK, UNK
     Route: 065
  10. LUMIGAN [Concomitant]
     Dosage: UNK, UNK
  11. MINAX [Concomitant]
     Dosage: UNK, UNK
     Route: 065

REACTIONS (2)
  - DYSPNOEA [None]
  - URTICARIA [None]
